FAERS Safety Report 22157633 (Version 1)
Quarter: 2023Q1

REPORT INFORMATION
  Report Type: Spontaneous
  Country: FR (occurrence: FR)
  Receive Date: 20230330
  Receipt Date: 20230330
  Transmission Date: 20230418
  Serious: Yes (Life-Threatening, Other)
  Sender: FDA-Public Use
  Company Number: None

PATIENT
  Age: 54 Year
  Sex: Female

DRUGS (8)
  1. ROPIVACAINE [Suspect]
     Active Substance: ROPIVACAINE
     Indication: Local anaesthesia
     Dosage: 75 MILLIGRAM, 1 TOTAL
     Route: 053
     Dates: start: 20230309, end: 20230309
  2. PROPOFOL [Suspect]
     Active Substance: PROPOFOL
     Indication: General anaesthesia
     Dosage: 200 MILLIGRAM, 1 TOTAL
     Route: 042
     Dates: start: 20230309, end: 20230309
  3. SUFENTANIL [Suspect]
     Active Substance: SUFENTANIL
     Indication: General anaesthesia
     Dosage: 25 MICROGRAM, 1 TOTAL
     Route: 042
     Dates: start: 20230309, end: 20230309
  4. DEXAMETHASONE [Suspect]
     Active Substance: DEXAMETHASONE
     Indication: Prophylaxis
     Dosage: 80 MILLIGRAM, 1 TOTAL
     Route: 042
     Dates: start: 20230309, end: 20230309
  5. ATRACURIUM [Suspect]
     Active Substance: ATRACURIUM
     Indication: General anaesthesia
     Dosage: 30 MILLIGRAM. 1 TOTAL
     Route: 042
     Dates: start: 20230309, end: 20230309
  6. PATENT BLUE V [Suspect]
     Active Substance: PATENT BLUE V
     Indication: Scan
     Dosage: UNK
     Route: 027
     Dates: start: 20230309, end: 20230309
  7. KETAMINE [Suspect]
     Active Substance: KETAMINE
     Indication: General anaesthesia
     Dosage: 15 MILLIGRAM, 1 TOTAL
     Route: 042
     Dates: start: 20230309, end: 20230309
  8. CALCIUM CHLORIDE\MAGNESIUM CHLORIDE\MALIC ACID\POTASSIUM CHLORIDE\SODI [Suspect]
     Active Substance: CALCIUM CHLORIDE\MAGNESIUM CHLORIDE\MALIC ACID\POTASSIUM CHLORIDE\SODIUM ACETATE\SODIUM CHLORIDE
     Indication: Blood volume expansion
     Dosage: 500 MILLILITER, 1 TOTAL
     Route: 042
     Dates: start: 20230309, end: 20230309

REACTIONS (1)
  - Anaphylactic reaction [Recovered/Resolved]

NARRATIVE: CASE EVENT DATE: 20230309
